FAERS Safety Report 8443520-5 (Version None)
Quarter: 2012Q2

REPORT INFORMATION
  Report Type: 
  Country: None (occurrence: None)
  Receive Date: 20120605
  Receipt Date: 20120525
  Transmission Date: 20120825
  Serious: Yes (Hospitalization)
  Sender: FDA-Public Use
  Company Number: 2012SP028793

PATIENT
  Age: 58 Year
  Sex: Male
  Weight: 92 kg

DRUGS (8)
  1. REBETOL [Suspect]
     Indication: HEPATITIS C
     Dosage: 1200 MG;QD
     Dates: start: 20120517
  2. VICTRELIS [Suspect]
     Indication: HEPATITIS C
     Dosage: 800 MG;TID
     Dates: start: 20110614
  3. VIRAFERONPEG [Suspect]
     Indication: HEPATITIS C
     Dosage: 150 MCG;QW;SC 100 MCG;QW;SC
     Route: 058
     Dates: start: 20110517, end: 20120214
  4. VIRAFERONPEG [Suspect]
     Indication: HEPATITIS C
     Dosage: 150 MCG;QW;SC 100 MCG;QW;SC
     Route: 058
     Dates: start: 20120215
  5. ALUMINUM HYDROXIDE AND MAGNESIUM TRISILICATE [Concomitant]
  6. CITALOPRAM HYDROBROMIDE [Concomitant]
  7. VALIUM [Concomitant]
  8. ESCITALOPRAM [Concomitant]

REACTIONS (15)
  - DRUG INTOLERANCE [None]
  - PAIN [None]
  - TREMOR [None]
  - HEART RATE INCREASED [None]
  - ANXIETY [None]
  - SUICIDAL IDEATION [None]
  - DECREASED APPETITE [None]
  - INFLUENZA [None]
  - CYTOLYTIC HEPATITIS [None]
  - DEPRESSION [None]
  - REFUSAL OF TREATMENT BY PATIENT [None]
  - NAUSEA [None]
  - HEPATOMEGALY [None]
  - HEADACHE [None]
  - HYPERTHERMIA [None]
